FAERS Safety Report 10069836 (Version 2)
Quarter: 2014Q2

REPORT INFORMATION
  Report Type: Spontaneous
  Country: US (occurrence: US)
  Receive Date: 20140410
  Receipt Date: 20140414
  Transmission Date: 20141212
  Serious: No
  Sender: FDA-Public Use
  Company Number: US-PFIZER INC-2014100263

PATIENT
  Sex: Male

DRUGS (4)
  1. ADVIL [Suspect]
     Indication: FIBROMYALGIA
     Dosage: TWO TABLETS, TWO TIMES A DAY
     Route: 048
     Dates: start: 201403, end: 201403
  2. ADVIL [Suspect]
     Indication: PAIN
  3. ZOLPIDEM [Concomitant]
     Indication: SLEEP DISORDER
     Dosage: 12.5 MG, ONCE A DAY
  4. TRAZODONE [Concomitant]
     Dosage: 200 MG, ONCE A DAY

REACTIONS (3)
  - Hypersensitivity [Not Recovered/Not Resolved]
  - Swelling [Unknown]
  - Ulcer [Unknown]
